FAERS Safety Report 24216907 (Version 1)
Quarter: 2024Q3

REPORT INFORMATION
  Report Type: Spontaneous
  Country: IT (occurrence: IT)
  Receive Date: 20240816
  Receipt Date: 20240816
  Transmission Date: 20241017
  Serious: Yes (Hospitalization)
  Sender: MYLAN
  Company Number: IT-MYLANLABS-2024M1075227

PATIENT
  Age: 71 Year
  Sex: Male

DRUGS (12)
  1. PREDNISONE [Suspect]
     Active Substance: PREDNISONE
     Indication: Gastric cancer
     Dosage: UNK, CYCLE, RECEIVED 4 CYCLES FOR GASTIC MALTOMA
     Route: 065
     Dates: start: 202107, end: 202111
  2. PREDNISONE [Suspect]
     Active Substance: PREDNISONE
     Indication: Extranodal marginal zone B-cell lymphoma (MALT type)
     Dosage: RECEIVED FOR SARSCOV2 INFECTION
     Route: 065
  3. PREDNISONE [Suspect]
     Active Substance: PREDNISONE
     Indication: COVID-19
  4. LAMIVUDINE [Suspect]
     Active Substance: LAMIVUDINE
     Indication: Antiviral prophylaxis
     Dosage: UNK
     Route: 065
     Dates: end: 202306
  5. CYCLOPHOSPHAMIDE [Suspect]
     Active Substance: CYCLOPHOSPHAMIDE
     Indication: Gastric cancer
     Dosage: UNK, CYCLE, RECEIVED 4 CYCLES
     Route: 065
     Dates: start: 202107, end: 202111
  6. CYCLOPHOSPHAMIDE [Suspect]
     Active Substance: CYCLOPHOSPHAMIDE
     Indication: Extranodal marginal zone B-cell lymphoma (MALT type)
  7. DOXORUBICIN [Suspect]
     Active Substance: DOXORUBICIN
     Indication: Gastric cancer
     Dosage: UNK, CYCLE, RECEIVED 4 CYCLES OF DOXORUBICIN-LIPOSOMAL
     Route: 065
     Dates: start: 202107, end: 202111
  8. DOXORUBICIN [Suspect]
     Active Substance: DOXORUBICIN
     Indication: Extranodal marginal zone B-cell lymphoma (MALT type)
  9. RITUXIMAB [Suspect]
     Active Substance: RITUXIMAB
     Indication: Gastric cancer
     Dosage: UNK, CYCLE, RECEIVED 4 CYCLES
     Route: 065
     Dates: start: 202107, end: 202111
  10. RITUXIMAB [Suspect]
     Active Substance: RITUXIMAB
     Indication: Extranodal marginal zone B-cell lymphoma (MALT type)
  11. VINCRISTINE [Suspect]
     Active Substance: VINCRISTINE
     Indication: Gastric cancer
     Dosage: UNK, CYCLE, RECEIVED 4 CYCLES
     Route: 065
     Dates: start: 202107, end: 202111
  12. VINCRISTINE [Suspect]
     Active Substance: VINCRISTINE
     Indication: Extranodal marginal zone B-cell lymphoma (MALT type)

REACTIONS (3)
  - Rebound effect [Recovered/Resolved]
  - Off label use [Recovered/Resolved]
  - Hepatitis B reactivation [Recovered/Resolved]
